FAERS Safety Report 11253050 (Version 1)
Quarter: 2015Q3

REPORT INFORMATION
  Report Type: Spontaneous
  Country: US (occurrence: None)
  Receive Date: 20150708
  Receipt Date: 20150708
  Transmission Date: 20151125
  Serious: Yes (Other)
  Sender: FDA-Public Use
  Company Number: None

PATIENT
  Age: 53 Year
  Sex: Female

DRUGS (1)
  1. COPAXONE [Suspect]
     Active Substance: GLATIRAMER ACETATE
     Indication: MULTIPLE SCLEROSIS
     Dosage: 40MG?TIW?SQ
     Dates: start: 20070101

REACTIONS (6)
  - Injection site reaction [None]
  - Abasia [None]
  - Back pain [None]
  - Dysstasia [None]
  - Chest discomfort [None]
  - Pain in extremity [None]

NARRATIVE: CASE EVENT DATE: 20150701
